FAERS Safety Report 15461703 (Version 1)
Quarter: 2018Q4

REPORT INFORMATION
  Report Type: Spontaneous
  Country: US (occurrence: US)
  Receive Date: 20181003
  Receipt Date: 20181003
  Transmission Date: 20190204
  Serious: No
  Sender: FDA-Public Use
  Company Number: US-AMGEN-USASP2017192086

PATIENT

DRUGS (1)
  1. VECTIBIX [Suspect]
     Active Substance: PANITUMUMAB
     Indication: PRODUCT USED FOR UNKNOWN INDICATION
     Dosage: UNK UNK, CYCLICAL
     Route: 065
     Dates: start: 201712

REACTIONS (3)
  - Lip swelling [Unknown]
  - Stomatitis [Unknown]
  - Mucosal inflammation [Unknown]

NARRATIVE: CASE EVENT DATE: 201712
